FAERS Safety Report 4693849-1 (Version None)
Quarter: 2005Q2

REPORT INFORMATION
  Report Type: 
  Country: None (occurrence: None)
  Receive Date: 20050615
  Receipt Date: 20050601
  Transmission Date: 20051028
  Serious: Yes (Hospitalization, Other)
  Sender: FDA-Public Use
  Company Number: 18743

PATIENT
  Age: 71 Year
  Sex: Male

DRUGS (1)
  1. LEUCOVORIN CALCIUM [Suspect]
     Indication: COLON CANCER
     Dosage: 400MG/M2/1 DAY/IV
     Route: 042
     Dates: start: 20050510

REACTIONS (2)
  - ANGINA PECTORIS [None]
  - MYOCARDIAL ISCHAEMIA [None]
